FAERS Safety Report 5580626-2 (Version None)
Quarter: 2008Q1

REPORT INFORMATION
  Report Type: 
  Country: None (occurrence: None)
  Receive Date: 20080103
  Receipt Date: 20071222
  Transmission Date: 20080703
  Serious: Yes (Other)
  Sender: FDA-Public Use
  Company Number: US-PFIZER INC-2007093446

PATIENT
  Sex: Female
  Weight: 79.4 kg

DRUGS (6)
  1. DEPO-MEDROL [Suspect]
     Indication: PAIN
  2. LIDOCAINE [Suspect]
     Indication: PAIN
  3. COZAAR [Concomitant]
  4. ZAROXOLYN [Concomitant]
  5. K-DUR 10 [Concomitant]
  6. LEVOXYL [Concomitant]

REACTIONS (1)
  - ANGIOEDEMA [None]
